FAERS Safety Report 12353048 (Version 1)
Quarter: 2016Q2

REPORT INFORMATION
  Report Type: Spontaneous
  Country: US (occurrence: US)
  Receive Date: 20160510
  Receipt Date: 20160510
  Transmission Date: 20160815
  Serious: No
  Sender: FDA-Public Use
  Company Number: ADR-2015-01500

PATIENT
  Age: 60 Year
  Sex: Female

DRUGS (5)
  1. LIORESAL [Suspect]
     Active Substance: BACLOFEN
     Dosage: 50.71 MCG/DAY
     Route: 037
     Dates: start: 20150730
  2. LIORESAL [Suspect]
     Active Substance: BACLOFEN
     Route: 037
  3. LIORESAL [Suspect]
     Active Substance: BACLOFEN
     Route: 037
     Dates: start: 20150730
  4. LIORESAL [Suspect]
     Active Substance: BACLOFEN
     Route: 037
     Dates: start: 20150730
  5. LIORESAL [Suspect]
     Active Substance: BACLOFEN
     Dosage: 229.73 MCG/DAY
     Route: 037
     Dates: start: 20150729

REACTIONS (10)
  - Nausea [Recovered/Resolved]
  - White blood cell count increased [Recovered/Resolved]
  - Urinary tract infection [Recovered/Resolved]
  - Abdominal discomfort [Recovered/Resolved]
  - Vomiting [Recovered/Resolved]
  - Anxiety [Recovered/Resolved]
  - Sedation [Recovered/Resolved]
  - Cold sweat [Recovered/Resolved]
  - Somnolence [Recovered/Resolved]
  - Incorrect dose administered [Recovered/Resolved]

NARRATIVE: CASE EVENT DATE: 20150730
